FAERS Safety Report 7055629-1 (Version None)
Quarter: 2010Q4

REPORT INFORMATION
  Report Type: 
  Country: None (occurrence: None)
  Receive Date: 20101021
  Receipt Date: 20101018
  Transmission Date: 20110411
  Serious: Yes (Other)
  Sender: FDA-Public Use
  Company Number: LT-BRISTOL-MYERS SQUIBB COMPANY-15337702

PATIENT
  Age: 51 Year
  Sex: Female
  Weight: 180 kg

DRUGS (3)
  1. MONOPRIL [Suspect]
     Indication: SUICIDAL IDEATION
     Dosage: DOSAGE:14 TABLETS AT ONCE
     Route: 048
     Dates: start: 20101001, end: 20101001
  2. ORFARIN [Suspect]
     Indication: SUICIDE ATTEMPT
     Dosage: DOSAGE:90 TABLETS AT ONCE
     Route: 048
     Dates: start: 20101001, end: 20101001
  3. DIGOXIN TABS [Suspect]
     Indication: SUICIDE ATTEMPT
     Dosage: DOSAGE:15 TABLETS AT ONCE
     Route: 048
     Dates: start: 20101001, end: 20101001

REACTIONS (3)
  - ARRHYTHMIA [None]
  - INTENTIONAL OVERDOSE [None]
  - SUICIDE ATTEMPT [None]
